FAERS Safety Report 9203964 (Version 1)
Quarter: 2013Q2

REPORT INFORMATION
  Report Type: Report from Study
  Country: US (occurrence: US)
  Receive Date: 20130402
  Receipt Date: 20130402
  Transmission Date: 20140414
  Serious: No
  Sender: FDA-Public Use
  Company Number: US-VERTEX PHARMACEUTICALS INC.-2013-004292

PATIENT
  Age: 58 Year
  Sex: Male
  Weight: 98 kg

DRUGS (9)
  1. VX-950 (TELAPREVIR) [Suspect]
     Indication: HEPATITIS C
     Dosage: 750 MG, TID
     Route: 048
  2. PEGASYS [Suspect]
     Indication: HEPATITIS C
  3. NOVOLOG [Concomitant]
  4. ACCUPRIL [Concomitant]
  5. HYDROCHLOROTH [Concomitant]
  6. AMLODIPINE [Concomitant]
  7. LYRICA [Concomitant]
  8. CAPSAICIN [Concomitant]
  9. VIAGRA [Concomitant]

REACTIONS (4)
  - Influenza like illness [Unknown]
  - Nausea [Unknown]
  - Haemorrhoids [Unknown]
  - Anorectal discomfort [Unknown]
